FAERS Safety Report 11984901 (Version 2)
Quarter: 2016Q1

REPORT INFORMATION
  Report Type: Spontaneous
  Country: JP (occurrence: JP)
  Receive Date: 20160201
  Receipt Date: 20160215
  Transmission Date: 20160526
  Serious: Yes (Hospitalization, Disabling, Other)
  Sender: FDA-Public Use
  Company Number: JP-PFIZER INC-2016005531

PATIENT
  Age: 68 Year
  Sex: Male
  Weight: 61.5 kg

DRUGS (3)
  1. SUTENT [Suspect]
     Active Substance: SUNITINIB MALATE
     Indication: METASTATIC RENAL CELL CARCINOMA
     Dosage: 50 MG, CYCLIC (DAILY, 4-WEEK-ON, 2-WEEK-OFF SCHEDULE)
     Route: 048
     Dates: start: 20131023, end: 201312
  2. SUTENT [Suspect]
     Active Substance: SUNITINIB MALATE
     Dosage: 50 MG, CYCLIC (ON A 2-WEEK-ON, 1-WEEK-OFF SCHEDULE)
     Dates: start: 201312, end: 20151210
  3. ZOMETA [Suspect]
     Active Substance: ZOLEDRONIC ACID
     Indication: METASTASES TO BONE
     Dosage: UNK
     Route: 042
     Dates: start: 201310, end: 201509

REACTIONS (5)
  - Diabetes mellitus [Not Recovered/Not Resolved]
  - Second primary malignancy [Not Recovered/Not Resolved]
  - Prostate cancer [Not Recovered/Not Resolved]
  - Nephrotic syndrome [Recovered/Resolved with Sequelae]
  - Osteonecrosis of jaw [Not Recovered/Not Resolved]

NARRATIVE: CASE EVENT DATE: 201410
